FAERS Safety Report 21458942 (Version 2)
Quarter: 2022Q4

REPORT INFORMATION
  Report Type: Spontaneous
  Country: DE (occurrence: DE)
  Receive Date: 20221014
  Receipt Date: 20221025
  Transmission Date: 20230113
  Serious: Yes (Other)
  Sender: FDA-Public Use
  Company Number: DE-TAKEDA-2022TUS072881

PATIENT
  Age: 5 Year
  Sex: Male

DRUGS (14)
  1. TEDUGLUTIDE [Suspect]
     Active Substance: TEDUGLUTIDE
     Indication: Product used for unknown indication
     Dosage: 1.25 MILLIGRAM
     Route: 065
     Dates: start: 202203, end: 202207
  2. TEDUGLUTIDE [Suspect]
     Active Substance: TEDUGLUTIDE
     Indication: Product used for unknown indication
     Dosage: 1.25 MILLIGRAM
     Route: 065
     Dates: start: 202203, end: 202207
  3. TEDUGLUTIDE [Suspect]
     Active Substance: TEDUGLUTIDE
     Indication: Product used for unknown indication
     Dosage: 1.25 MILLIGRAM
     Route: 065
     Dates: start: 202203, end: 202207
  4. TEDUGLUTIDE [Suspect]
     Active Substance: TEDUGLUTIDE
     Indication: Product used for unknown indication
     Dosage: 1.25 MILLIGRAM
     Route: 065
     Dates: start: 202203, end: 202207
  5. TACROLIMUS [Concomitant]
     Active Substance: TACROLIMUS
  6. PREDNISOLONE [Concomitant]
     Active Substance: PREDNISOLONE
  7. AZATHIOPRINE [Concomitant]
     Active Substance: AZATHIOPRINE
  8. CIPROFLOXACIN [Concomitant]
     Active Substance: CIPROFLOXACIN
  9. URSODIOL [Concomitant]
     Active Substance: URSODIOL
  10. Vita d [Concomitant]
  11. VITA K [Concomitant]
     Active Substance: OCTINOXATE
  12. MAGNESIUM [Concomitant]
     Active Substance: MAGNESIUM
  13. OMEPRAZOLE [Concomitant]
     Active Substance: OMEPRAZOLE
  14. CHOLESTYRAMINE [Concomitant]
     Active Substance: CHOLESTYRAMINE

REACTIONS (1)
  - Epstein-Barr virus associated lymphoma [Unknown]

NARRATIVE: CASE EVENT DATE: 20220701
